FAERS Safety Report 10619775 (Version 1)
Quarter: 2014Q4

REPORT INFORMATION
  Report Type: Spontaneous
  Country: US (occurrence: None)
  Receive Date: 20141201
  Receipt Date: 20141201
  Transmission Date: 20150529
  Serious: Yes (Disabling)
  Sender: FDA-Public Use
  Company Number: None

PATIENT
  Age: 15 Day

DRUGS (2)
  1. LUPRON DEPOT [Suspect]
     Active Substance: LEUPROLIDE ACETATE
     Indication: ENDOMETRIOSIS
     Route: 030
     Dates: start: 20140529, end: 20141128
  2. NORETHINDRONE. [Suspect]
     Active Substance: NORETHINDRONE
     Indication: ENDOMETRIOSIS
     Dosage: 1 PILL ONCE DAILY TAKEN BY MOUTH
     Route: 048

REACTIONS (8)
  - Abdominal pain upper [None]
  - Hot flush [None]
  - Dyspepsia [None]
  - Arthralgia [None]
  - Gastrooesophageal reflux disease [None]
  - Headache [None]
  - Quality of life decreased [None]
  - Confusional state [None]

NARRATIVE: CASE EVENT DATE: 20141116
